FAERS Safety Report 9517609 (Version 1)
Quarter: 2013Q3

REPORT INFORMATION
  Report Type: Report from Study
  Country: GB (occurrence: GB)
  Receive Date: 20130912
  Receipt Date: 20130912
  Transmission Date: 20140515
  Serious: Yes (Other)
  Sender: FDA-Public Use
  Company Number: GB-ROCHE-1272936

PATIENT
  Age: 76 Year
  Sex: Female

DRUGS (4)
  1. BEVACIZUMAB [Suspect]
     Indication: GASTRIC CANCER
     Dosage: DOSE OF MOST RECENT ADMINISTRATION 525 ON 26/JUN/2013
     Route: 042
     Dates: start: 20120620
  2. CAPECITABINE [Suspect]
     Indication: GASTRIC CANCER
     Dosage: DOSE OF MOST RECENT ADMINISTRATION 37800 ON 20/FEB/2013
     Route: 048
  3. EPIRUBICIN [Suspect]
     Indication: GASTRIC CANCER
     Dosage: DOSE OF MOST RECENT ADMINISTRATION 48 ON 20/FEB/2013
     Route: 042
     Dates: start: 20120620
  4. CISPLATIN [Suspect]
     Indication: GASTRIC CANCER
     Dosage: DOSE OF MOST RECENT ADMINISTRATION 87 ON 20/FEB/2013
     Route: 042
     Dates: start: 20130620

REACTIONS (1)
  - Wound [Recovered/Resolved]
